FAERS Safety Report 8301763-5 (Version None)
Quarter: 2012Q2

REPORT INFORMATION
  Report Type: 
  Country: None (occurrence: None)
  Receive Date: 20120420
  Receipt Date: 20120411
  Transmission Date: 20120825
  Serious: Yes (Hospitalization)
  Sender: FDA-Public Use
  Company Number: US-JNJFOC-20120301805

PATIENT
  Sex: Male
  Weight: 76.8 kg

DRUGS (4)
  1. METHOTREXATE [Concomitant]
  2. HUMIRA [Concomitant]
     Dates: start: 20110422
  3. REMICADE [Suspect]
     Indication: CROHN'S DISEASE
     Route: 042
     Dates: start: 20080714
  4. PREDNISONE TAB [Concomitant]

REACTIONS (2)
  - CROHN'S DISEASE [None]
  - CHRONIC RECURRENT MULTIFOCAL OSTEOMYELITIS [None]
